FAERS Safety Report 12379667 (Version 1)
Quarter: 2016Q2

REPORT INFORMATION
  Report Type: Spontaneous
  Country: US (occurrence: US)
  Receive Date: 20160518
  Receipt Date: 20160518
  Transmission Date: 20160815
  Serious: No
  Sender: FDA-Public Use
  Company Number: US-ACCORD-038319

PATIENT
  Sex: Male

DRUGS (1)
  1. LISINOPRIL ACCORD [Suspect]
     Active Substance: LISINOPRIL
     Indication: PRODUCT USED FOR UNKNOWN INDICATION

REACTIONS (3)
  - No therapeutic response [Unknown]
  - Product substitution issue [Unknown]
  - Blood pressure increased [Unknown]
